FAERS Safety Report 5730937-2 (Version None)
Quarter: 2008Q2

REPORT INFORMATION
  Report Type: 
  Country: None (occurrence: None)
  Receive Date: 20080502
  Receipt Date: 20080421
  Transmission Date: 20081010
  Serious: Yes (Hospitalization, Other)
  Sender: FDA-Public Use
  Company Number: TPA2008A00335

PATIENT
  Sex: Male
  Weight: 78.9259 kg

DRUGS (20)
  1. ACTOS [Suspect]
     Indication: TYPE 2 DIABETES MELLITUS
     Dosage: 30 MG, 1 IN 1 D, PER ORAL : 45 MG, 1 IN 1 D, PER ORAL
     Route: 048
     Dates: start: 20051205, end: 20070709
  2. ACTOS [Suspect]
     Indication: TYPE 2 DIABETES MELLITUS
     Dosage: 30 MG, 1 IN 1 D, PER ORAL : 45 MG, 1 IN 1 D, PER ORAL
     Route: 048
     Dates: end: 20070709
  3. LASIX [Concomitant]
  4. METFORMIN HCL [Concomitant]
  5. PENTOXIFYLLIN (PENTOXIFYLLINE) [Concomitant]
  6. LIPITOR [Concomitant]
  7. ZANTAC [Concomitant]
  8. TOPROL-XL [Concomitant]
  9. MULTIVITAMIN [Concomitant]
  10. DIOVAN [Concomitant]
  11. FLOMAX (ALL OTHER THERAPEUTIC PRODUCTS) [Concomitant]
  12. RANITIDINE [Concomitant]
  13. GLIPIZIDE [Concomitant]
  14. LISINOPIRL (LISINOPRIL) [Concomitant]
  15. LANXIN (ALL OTHER THERAPEUTIC PRODUCTS) [Concomitant]
  16. PREDNISONE TAB [Concomitant]
  17. FENTAL (TEGAFUR) [Concomitant]
  18. GLUCOTROL XL [Concomitant]
  19. GLUCOPHAGE XR (METFORMIN HYDROCHLORIDE) [Concomitant]
  20. DARVOCET (PARACETAMOL, DEXTROPROPOXYPHENE NAPSILATE) [Concomitant]

REACTIONS (3)
  - CARDIAC FAILURE CONGESTIVE [None]
  - CELLULITIS STAPHYLOCOCCAL [None]
  - MYOCARDIAL INFARCTION [None]
